FAERS Safety Report 5825458-2 (Version None)
Quarter: 2008Q3

REPORT INFORMATION
  Report Type: 
  Country: None (occurrence: None)
  Receive Date: 20080723
  Receipt Date: 20080715
  Transmission Date: 20090109
  Serious: Yes (Death, Hospitalization)
  Sender: FDA-Public Use
  Company Number: 20074453

PATIENT
  Sex: Female

DRUGS (2)
  1. LIORESAL [Suspect]
     Indication: MUSCLE SPASTICITY
     Dosage: 515 MCG, DAILY, INTRATHECAL
     Route: 037
  2. GENTAMYCIN SULFATE [Concomitant]

REACTIONS (4)
  - CYSTITIS [None]
  - DRUG TOXICITY [None]
  - MENTAL STATUS CHANGES [None]
  - RENAL FAILURE [None]
